FAERS Safety Report 8490666 (Version 2)
Quarter: 2014Q2

REPORT INFORMATION
  Report Type: Report from Study
  Country: MX (occurrence: MX)
  Receive Date: 20120403
  Receipt Date: 20140415
  Transmission Date: 20141212
  Serious: Yes (Death, Hospitalization, Other)
  Sender: FDA-Public Use
  Company Number: PHHY2012MX026158

PATIENT
  Age: 90 Year
  Sex: Male

DRUGS (5)
  1. GALVUS MET [Suspect]
     Indication: DIABETES MELLITUS
     Dosage: 1 TABLET (500/50 MG) DAILY
     Dates: start: 2011, end: 201403
  2. CO-DIOVAN [Suspect]
     Indication: HYPERTENSION
     Dosage: 1 TABLET (160/25 MG) DAILY
     Route: 048
  3. LANOXIN [Concomitant]
     Dosage: 0.5 TABLET, QW5 (FROM MONDAY TO FRIDAY)
     Dates: start: 201202
  4. SOMAZINA [Concomitant]
     Dosage: 2 TABLETS PER DAY
     Dates: start: 201202
  5. COPLAVIX [Concomitant]
     Dosage: 1 TABLET, PER DAY
     Dates: start: 201202

REACTIONS (5)
  - Respiratory failure [Fatal]
  - Cerebral disorder [Recovering/Resolving]
  - Restlessness [Recovering/Resolving]
  - Speech disorder [Recovering/Resolving]
  - Prostatic disorder [Unknown]
